FAERS Safety Report 9780618 (Version 2)
Quarter: 2013Q4

REPORT INFORMATION
  Report Type: Spontaneous
  Country: US (occurrence: US)
  Receive Date: 20131224
  Receipt Date: 20131224
  Transmission Date: 20140711
  Serious: Yes (Life-Threatening, Hospitalization)
  Sender: FDA-Public Use
  Company Number: US-ELI_LILLY_AND_COMPANY-US201308007334

PATIENT
  Sex: Male
  Weight: 45.2 kg

DRUGS (3)
  1. INSULIN HUMAN [Suspect]
     Dosage: UNK UNK, UNKNOWN
     Route: 065
  2. INSULIN HUMAN [Suspect]
     Dosage: UNK
     Route: 042
  3. INSULIN HUMAN [Suspect]
     Route: 042

REACTIONS (2)
  - Diabetic ketoacidosis [Recovered/Resolved]
  - Drug ineffective [Recovered/Resolved]
